FAERS Safety Report 8860662 (Version 1)
Quarter: 2012Q4

REPORT INFORMATION
  Report Type: 
  Country: US (occurrence: US)
  Receive Date: 20121025
  Receipt Date: 20121025
  Transmission Date: 20130627
  Serious: No
  Sender: FDA-Public Use
  Company Number: US-ASTRAZENECA-2012SE78660

PATIENT
  Age: 25 Year
  Sex: Male
  Weight: 68 kg

DRUGS (4)
  1. SEROQUEL [Suspect]
     Indication: BIPOLAR DISORDER
     Route: 048
     Dates: start: 20120927
  2. SEROQUEL [Suspect]
     Indication: BIPOLAR DISORDER
     Route: 048
     Dates: start: 20121010
  3. LAMICTAL [Concomitant]
     Indication: BIPOLAR DISORDER
  4. ALPRAZOLAM [Concomitant]
     Indication: ANXIETY

REACTIONS (8)
  - Nausea [Recovering/Resolving]
  - Memory impairment [Not Recovered/Not Resolved]
  - Confusional state [Unknown]
  - Gastroenteritis viral [Unknown]
  - Weight decreased [Not Recovered/Not Resolved]
  - Sedation [Not Recovered/Not Resolved]
  - Somnolence [Not Recovered/Not Resolved]
  - Vomiting [Recovering/Resolving]
